FAERS Safety Report 7952901-5 (Version None)
Quarter: 2011Q4

REPORT INFORMATION
  Report Type: 
  Country: None (occurrence: None)
  Receive Date: 20111129
  Receipt Date: 20111117
  Transmission Date: 20120403
  Serious: Yes (Hospitalization)
  Sender: FDA-Public Use
  Company Number: WAES 1111USA02850

PATIENT
  Age: 63 Year
  Sex: Male

DRUGS (2)
  1. PLACEBO [Suspect]
     Indication: TYPE 2 DIABETES MELLITUS
     Dosage: SC
     Route: 058
     Dates: start: 20110325
  2. JANUVIA [Suspect]
     Indication: TYPE 2 DIABETES MELLITUS
     Dosage: PO
     Route: 048
     Dates: start: 20110325

REACTIONS (3)
  - VENTRICULAR HYPOKINESIA [None]
  - CORONARY ARTERY STENOSIS [None]
  - ANGINA PECTORIS [None]
